FAERS Safety Report 4337927-5 (Version None)
Quarter: 2004Q2

REPORT INFORMATION
  Report Type: 
  Country: None (occurrence: None)
  Receive Date: 20040408
  Receipt Date: 20040329
  Transmission Date: 20050107
  Serious: Yes (Hospitalization)
  Sender: FDA-Public Use
  Company Number: 04P-020-0255085-00

PATIENT
  Age: 48 Year
  Sex: Female
  Weight: 85 kg

DRUGS (4)
  1. MERIDIA [Suspect]
     Indication: WEIGHT DECREASED
     Dosage: 10 MG, 1 IN 1 D, PER ORAL
     Route: 048
     Dates: start: 20030601
  2. PAROXETINE HCL [Suspect]
     Indication: DEPRESSION
     Dosage: 20 MG, 1 IN 1 D, PER ORAL
     Route: 048
     Dates: start: 19880101, end: 20031101
  3. CLOBAZAM [Concomitant]
  4. LEVOTHYROXINE SODIUM [Concomitant]

REACTIONS (2)
  - DRUG INTERACTION [None]
  - PANIC DISORDER [None]
